FAERS Safety Report 24711553 (Version 1)
Quarter: 2024Q4

REPORT INFORMATION
  Report Type: Report from Study
  Country: IN (occurrence: IN)
  Receive Date: 20241209
  Receipt Date: 20241209
  Transmission Date: 20250115
  Serious: Yes (Death, Hospitalization, Other)
  Sender: PFIZER
  Company Number: IN-TAKEDA-2024TUS119958

PATIENT
  Age: 67 Year
  Sex: Male

DRUGS (1)
  1. ADCETRIS [Suspect]
     Active Substance: BRENTUXIMAB VEDOTIN
     Indication: Anaplastic large cell lymphoma T- and null-cell types
     Dosage: 100 MILLIGRAM, CYCLIC
     Route: 042
     Dates: start: 20240925

REACTIONS (3)
  - Death [Fatal]
  - Blood pressure fluctuation [Unknown]
  - Vomiting [Unknown]

NARRATIVE: CASE EVENT DATE: 20241113
